FAERS Safety Report 13617959 (Version 1)
Quarter: 2017Q2

REPORT INFORMATION
  Report Type: Report from Study
  Country: US (occurrence: US)
  Receive Date: 20170606
  Receipt Date: 20170606
  Transmission Date: 20170830
  Serious: Yes (Hospitalization)
  Sender: FDA-Public Use
  Company Number: US-ASTRAZENECA-2017SE58954

PATIENT
  Age: 849 Month
  Sex: Female
  Weight: 58.1 kg

DRUGS (2)
  1. AZD2171 [Suspect]
     Active Substance: CEDIRANIB
     Indication: OVARIAN CANCER
     Route: 048
     Dates: start: 20170307
  2. OLAPARIB [Suspect]
     Active Substance: OLAPARIB
     Indication: OVARIAN CANCER
     Route: 048
     Dates: start: 20170307

REACTIONS (1)
  - Large intestinal obstruction [Recovering/Resolving]

NARRATIVE: CASE EVENT DATE: 20170412
